FAERS Safety Report 16248365 (Version 1)
Quarter: 2019Q2

REPORT INFORMATION
  Report Type: Spontaneous
  Country: NO (occurrence: NO)
  Receive Date: 20190429
  Receipt Date: 20190429
  Transmission Date: 20190711
  Serious: Yes (Life-Threatening, Hospitalization, Disabling, Other)
  Sender: FDA-Public Use
  Company Number: NO-TEVA-2019-NO-1042350

PATIENT
  Age: 60 Year
  Sex: Male
  Weight: 90 kg

DRUGS (4)
  1. METOPROLOL. [Suspect]
     Active Substance: METOPROLOL
     Indication: ARRHYTHMIA
     Dosage: 25 MILLIGRAM DAILY;
     Dates: start: 201806
  2. ATORVASTATIN MYLAN [Suspect]
     Active Substance: ATORVASTATIN
     Indication: BLOOD CHOLESTEROL
     Dosage: 80 MILLIGRAM DAILY;
     Dates: start: 201806
  3. ATORVASTATIN MYLAN [Suspect]
     Active Substance: ATORVASTATIN
     Dates: start: 20180621
  4. METOPROLOL SANDOZ [Concomitant]
     Active Substance: METOPROLOL
     Dates: start: 20180722, end: 20190403

REACTIONS (4)
  - Muscular weakness [Unknown]
  - Polymyalgia rheumatica [Not Recovered/Not Resolved]
  - Temporal arteritis [Not Recovered/Not Resolved]
  - Neuropathy peripheral [Not Recovered/Not Resolved]

NARRATIVE: CASE EVENT DATE: 201806
